FAERS Safety Report 12855340 (Version 2)
Quarter: 2016Q4

REPORT INFORMATION
  Report Type: Spontaneous
  Country: JP (occurrence: JP)
  Receive Date: 20161017
  Receipt Date: 20161028
  Transmission Date: 20170207
  Serious: Yes (Death)
  Sender: FDA-Public Use
  Company Number: JP-JNJFOC-20161011866

PATIENT
  Age: 5 Decade
  Sex: Male

DRUGS (17)
  1. XEPLION [Suspect]
     Active Substance: PALIPERIDONE PALMITATE
     Indication: SCHIZOPHRENIA
     Dosage: RIGHT GLUTEAL MUSCLE
     Route: 030
     Dates: start: 20160305, end: 20160305
  2. XEPLION [Suspect]
     Active Substance: PALIPERIDONE PALMITATE
     Indication: SCHIZOPHRENIA
     Dosage: RIGHT GLUTEAL MUSCLE
     Route: 030
     Dates: start: 20160430, end: 20160430
  3. XEPLION [Suspect]
     Active Substance: PALIPERIDONE PALMITATE
     Indication: SCHIZOPHRENIA
     Dosage: RIGHT GLUTEAL MUSCLE
     Route: 030
     Dates: start: 20160112, end: 20160112
  4. XEPLION [Suspect]
     Active Substance: PALIPERIDONE PALMITATE
     Indication: SCHIZOPHRENIA
     Dosage: RIGHT DELTOID MUSCLE
     Route: 030
     Dates: start: 20150622, end: 20150622
  5. XEPLION [Suspect]
     Active Substance: PALIPERIDONE PALMITATE
     Indication: SCHIZOPHRENIA
     Dosage: LEFT GLUTEAL MUSCLE
     Route: 030
     Dates: start: 20150825, end: 20150825
  6. ZYPREXA [Concomitant]
     Active Substance: OLANZAPINE
     Indication: SCHIZOPHRENIA
     Route: 065
     Dates: end: 20160804
  7. XEPLION [Suspect]
     Active Substance: PALIPERIDONE PALMITATE
     Indication: SCHIZOPHRENIA
     Dosage: RIGHT GLUTEAL MUSCLE
     Route: 030
     Dates: start: 20150915, end: 20150915
  8. XEPLION [Suspect]
     Active Substance: PALIPERIDONE PALMITATE
     Indication: SCHIZOPHRENIA
     Dosage: LEFT GLUTEAL MUSCLE
     Route: 030
     Dates: start: 20160209, end: 20160209
  9. XEPLION [Suspect]
     Active Substance: PALIPERIDONE PALMITATE
     Indication: SCHIZOPHRENIA
     Dosage: RIGHT GLUTEAL MUSCLE
     Route: 030
     Dates: start: 20150728, end: 20150728
  10. XEPLION [Suspect]
     Active Substance: PALIPERIDONE PALMITATE
     Indication: SCHIZOPHRENIA
     Dosage: LEFT GLUTEAL MUSCLE
     Route: 030
     Dates: start: 20151208, end: 20151208
  11. XEPLION [Suspect]
     Active Substance: PALIPERIDONE PALMITATE
     Indication: SCHIZOPHRENIA
     Dosage: LEFT GLUTEAL MUSCLE
     Route: 030
     Dates: start: 20160402, end: 20160402
  12. XEPLION [Suspect]
     Active Substance: PALIPERIDONE PALMITATE
     Indication: SCHIZOPHRENIA
     Dosage: LEFT GLUTEAL MUSCLE
     Route: 030
     Dates: start: 20160725, end: 20160725
  13. XEPLION [Suspect]
     Active Substance: PALIPERIDONE PALMITATE
     Indication: SCHIZOPHRENIA
     Dosage: LEFT GLUTEAL MUSCLE
     Route: 030
     Dates: start: 20151013, end: 20151013
  14. XEPLION [Suspect]
     Active Substance: PALIPERIDONE PALMITATE
     Indication: SCHIZOPHRENIA
     Dosage: RIGHT GLUTEAL MUSCLE
     Route: 030
     Dates: start: 20151110, end: 20151110
  15. XEPLION [Suspect]
     Active Substance: PALIPERIDONE PALMITATE
     Indication: SCHIZOPHRENIA
     Route: 030
     Dates: start: 20150629, end: 20150629
  16. XEPLION [Suspect]
     Active Substance: PALIPERIDONE PALMITATE
     Indication: SCHIZOPHRENIA
     Route: 030
     Dates: start: 20160528, end: 20160528
  17. XEPLION [Suspect]
     Active Substance: PALIPERIDONE PALMITATE
     Indication: SCHIZOPHRENIA
     Dosage: RIGHT GLUTEAL MUSCLE
     Route: 030
     Dates: start: 20160627, end: 20160627

REACTIONS (1)
  - Sudden death [Fatal]
